FAERS Safety Report 8793419 (Version 1)
Quarter: 2012Q4

REPORT INFORMATION
  Report Type: 
  Country: VE (occurrence: VE)
  Receive Date: 20120918
  Receipt Date: 20120918
  Transmission Date: 20130627
  Serious: Yes (Hospitalization)
  Sender: FDA-Public Use
  Company Number: PHHY2012VE080269

PATIENT
  Age: 68 Year
  Sex: Female

DRUGS (3)
  1. ACLASTA [Suspect]
     Indication: BONE DECALCIFICATION
     Dosage: 5 mg/ annually
     Route: 042
     Dates: start: 201206
  2. CALCIUM [Concomitant]
     Dosage: 1 DF, QD
     Route: 048
  3. GLUCOSAMINE [Concomitant]
     Dosage: 1 DF, QD
     Route: 048

REACTIONS (2)
  - Fall [Recovered/Resolved]
  - Femur fracture [Recovered/Resolved]
